FAERS Safety Report 7715991-0 (Version None)
Quarter: 2011Q3

REPORT INFORMATION
  Report Type: 
  Country: None (occurrence: None)
  Receive Date: 20110812
  Receipt Date: 20110310
  Transmission Date: 20111222
  Serious: Yes (Hospitalization)
  Sender: FDA-Public Use
  Company Number: MEDI-0011740

PATIENT
  Age: 4 Month
  Sex: Male
  Weight: 5.9648 kg

DRUGS (3)
  1. SYNAGIS [Suspect]
     Dosage: 1 IN 1 M ; 1 IN 1 M ; 1 IN 1 M
     Dates: start: 20101105, end: 20101105
  2. SYNAGIS [Suspect]
     Dosage: 1 IN 1 M ; 1 IN 1 M ; 1 IN 1 M
     Dates: start: 20110302, end: 20110302
  3. SYNAGIS [Suspect]
     Dosage: 1 IN 1 M ; 1 IN 1 M ; 1 IN 1 M
     Dates: start: 20101203, end: 20110204

REACTIONS (7)
  - NASAL CONGESTION [None]
  - CONDITION AGGRAVATED [None]
  - EAR PAIN [None]
  - DYSPNOEA [None]
  - RESPIRATION ABNORMAL [None]
  - TACHYPNOEA [None]
  - WHEEZING [None]
